FAERS Safety Report 15853014 (Version 1)
Quarter: 2019Q1

REPORT INFORMATION
  Report Type: Spontaneous
  Country: US (occurrence: US)
  Receive Date: 20190122
  Receipt Date: 20190122
  Transmission Date: 20190417
  Serious: No
  Sender: FDA-Public Use
  Company Number: US-PERRIGO-18US002279

PATIENT
  Age: 36 Year
  Sex: Female
  Weight: 82.54 kg

DRUGS (7)
  1. IBUPROFEN. [Suspect]
     Active Substance: IBUPROFEN
     Indication: PAIN
     Dosage: 600 MG, EVERY 6 TO 8 HOURS, UP TO TID, PRN
     Route: 048
     Dates: start: 201712, end: 20180129
  2. FLORADIX [Concomitant]
     Active Substance: IRON
     Indication: PROPHYLAXIS
     Dosage: UNK
     Route: 048
     Dates: start: 201801
  3. VITAMIN D [Concomitant]
     Active Substance: CHOLECALCIFEROL
     Indication: MALNUTRITION
     Dosage: UNK
     Route: 048
     Dates: start: 201801
  4. MIRALAX [Concomitant]
     Active Substance: POLYETHYLENE GLYCOL 3350
     Indication: CONSTIPATION
     Dosage: UNK
     Route: 048
     Dates: start: 2017
  5. AZELASTINE HYDROCHLORIDE. [Concomitant]
     Active Substance: AZELASTINE HYDROCHLORIDE
     Indication: ASTHMA
     Dosage: UNK
     Route: 045
     Dates: start: 201712
  6. VITAMIN B12 [Concomitant]
     Active Substance: CYANOCOBALAMIN
     Indication: MALNUTRITION
     Dosage: UNK
     Route: 048
     Dates: start: 201801
  7. IBUPROFEN. [Suspect]
     Active Substance: IBUPROFEN
     Dosage: 600 MG, QD
     Route: 048
     Dates: start: 20180219, end: 20180221

REACTIONS (4)
  - Disturbance in attention [Recovering/Resolving]
  - Contraindicated product administered [Recovered/Resolved]
  - Myalgia [Recovered/Resolved]
  - Incorrect dose administered [Recovered/Resolved]

NARRATIVE: CASE EVENT DATE: 201712
